FAERS Safety Report 11926500 (Version 2)
Quarter: 2016Q2

REPORT INFORMATION
  Report Type: Spontaneous
  Country: US (occurrence: US)
  Receive Date: 20160119
  Receipt Date: 20160603
  Transmission Date: 20160815
  Serious: Yes (Life-Threatening, Hospitalization, Other)
  Sender: FDA-Public Use
  Company Number: US-TEVA-625139USA

PATIENT
  Age: 18 Year
  Sex: Male

DRUGS (6)
  1. PHENOBARBITAL. [Concomitant]
     Active Substance: PHENOBARBITAL
     Indication: MANIA
     Dosage: 97.2 MG
     Route: 065
  2. FENTANYL. [Concomitant]
     Active Substance: FENTANYL
     Indication: MANIA
     Route: 050
  3. CLOZAPINE. [Suspect]
     Active Substance: CLOZAPINE
     Indication: BIPOLAR DISORDER
     Route: 065
  4. PROPOFOL. [Suspect]
     Active Substance: PROPOFOL
     Indication: MANIA
     Dosage: INFUSION
  5. LORAZEPAM. [Concomitant]
     Active Substance: LORAZEPAM
     Indication: MANIA
     Route: 065
  6. LITHIUM. [Suspect]
     Active Substance: LITHIUM
     Route: 065

REACTIONS (6)
  - Neuroleptic malignant syndrome [Recovering/Resolving]
  - Catatonia [Recovering/Resolving]
  - Chromaturia [Unknown]
  - Mania [Recovering/Resolving]
  - Hypertriglyceridaemia [Unknown]
  - Toxicity to various agents [Unknown]
